FAERS Safety Report 20903359 (Version 1)
Quarter: 2022Q2

REPORT INFORMATION
  Report Type: Report from Study
  Country: US (occurrence: US)
  Receive Date: 20220601
  Receipt Date: 20220601
  Transmission Date: 20220721
  Serious: Yes (Hospitalization)
  Sender: FDA-Public Use
  Company Number: US-BRISTOL-MYERS SQUIBB COMPANY-2022-013192

PATIENT
  Age: 59 Year
  Sex: Female

DRUGS (2)
  1. ZEPOSIA [Suspect]
     Active Substance: OZANIMOD HYDROCHLORIDE
     Indication: Colitis ulcerative
     Dosage: DOSE: 0.92 MILLIGRAM, FREQ: DAILY
     Route: 048
     Dates: start: 20220224, end: 20220317
  2. ZEPOSIA [Suspect]
     Active Substance: OZANIMOD HYDROCHLORIDE
     Dosage: UNAVILABLE
     Route: 048
     Dates: start: 20220313, end: 20220324

REACTIONS (5)
  - Dizziness [Recovered/Resolved]
  - Chest pain [Unknown]
  - Diarrhoea [Unknown]
  - Nausea [Unknown]
  - Asthenia [Unknown]

NARRATIVE: CASE EVENT DATE: 20220310
